FAERS Safety Report 16528605 (Version 3)
Quarter: 2019Q3

REPORT INFORMATION
  Report Type: Report from Study
  Country: FR (occurrence: FR)
  Receive Date: 20190703
  Receipt Date: 20190814
  Transmission Date: 20191004
  Serious: Yes (Other)
  Sender: FDA-Public Use
  Company Number: PHHY2019FR152728

PATIENT
  Age: 56 Year
  Sex: Female
  Weight: 62 kg

DRUGS (3)
  1. TEA TREE OIL. [Concomitant]
     Active Substance: TEA TREE OIL
     Indication: GENITAL HERPES
     Dosage: UNK
     Route: 048
  2. TISAGENLECLEUCEL. [Suspect]
     Active Substance: TISAGENLECLEUCEL
     Indication: LYMPHOMA
     Dosage: UNK (2.2964X10^8/L CAR POSITIVE VIABLE T-CELLS)
     Route: 042
     Dates: start: 20190411
  3. VENTOLINE [Concomitant]
     Active Substance: ALBUTEROL
     Indication: ASTHMA
     Dosage: 2 DF (BREATH), PRN
     Route: 055

REACTIONS (5)
  - Cytokine release syndrome [Recovered/Resolved]
  - Febrile bone marrow aplasia [Recovered/Resolved]
  - Body temperature increased [Recovered/Resolved]
  - Febrile neutropenia [Unknown]
  - Cytopenia [Unknown]

NARRATIVE: CASE EVENT DATE: 20190414
